FAERS Safety Report 14251126 (Version 1)
Quarter: 2017Q4

REPORT INFORMATION
  Report Type: Spontaneous
  Country: BR (occurrence: BR)
  Receive Date: 20171205
  Receipt Date: 20171205
  Transmission Date: 20180321
  Serious: Yes (Other)
  Sender: FDA-Public Use
  Company Number: BR-009507513-1711BRA011565

PATIENT
  Age: 83 Year
  Sex: Female

DRUGS (1)
  1. INVANZ [Suspect]
     Active Substance: ERTAPENEM SODIUM
     Indication: URINARY TRACT INFECTION
     Dosage: DOSE UNSPECIFIED, ONCE A DAY
     Dates: start: 20171117, end: 20171118

REACTIONS (7)
  - Diarrhoea [Not Recovered/Not Resolved]
  - Ocular hyperaemia [Recovering/Resolving]
  - Rash papular [Recovering/Resolving]
  - Nausea [Not Recovered/Not Resolved]
  - Hypertensive crisis [Unknown]
  - Nervousness [Not Recovered/Not Resolved]
  - Pain of skin [Unknown]

NARRATIVE: CASE EVENT DATE: 201711
